FAERS Safety Report 5022328-7 (Version None)
Quarter: 2006Q2

REPORT INFORMATION
  Report Type: 
  Country: None (occurrence: None)
  Receive Date: 20060501
  Receipt Date: 20050510
  Transmission Date: 20061013
  Serious: Yes (Other)
  Sender: FDA-Public Use
  Company Number: 18300

PATIENT
  Age: 49 Year
  Sex: Male
  Weight: 84.8226 kg

DRUGS (1)
  1. LEUCOVORIN CALCIUM [Suspect]
     Indication: RECTAL CANCER STAGE IV
     Dosage: 350MG/IV
     Route: 042
     Dates: start: 20050202

REACTIONS (3)
  - ERYTHEMA [None]
  - FLUSHING [None]
  - HYPERSENSITIVITY [None]
